FAERS Safety Report 7355331-2 (Version None)
Quarter: 2011Q1

REPORT INFORMATION
  Report Type: 
  Country: None (occurrence: None)
  Receive Date: 20110316
  Receipt Date: 20110311
  Transmission Date: 20110831
  Serious: Yes (Hospitalization)
  Sender: FDA-Public Use
  Company Number: DE-ROCHE-762019

PATIENT
  Sex: Male
  Weight: 94.3 kg

DRUGS (2)
  1. CAPECITABINE [Suspect]
     Indication: RECTAL CANCER
     Dosage: ACTUAL DOSE:1750 MG ON DAYS 1-33 W/OUT WEEKENDS AND OPTIONAL BOOST. LAST DOSE PRIOR TO SAE 17 DEC 10
     Route: 048
     Dates: start: 20101110, end: 20101217
  2. RAMIPRIL [Concomitant]
     Indication: HYPERTONIA

REACTIONS (3)
  - VOMITING [None]
  - ANASTOMOTIC LEAK [None]
  - ABDOMINAL PAIN [None]
